FAERS Safety Report 11617102 (Version 1)
Quarter: 2015Q4

REPORT INFORMATION
  Report Type: Report from Study
  Country: DE (occurrence: DE)
  Receive Date: 20151009
  Receipt Date: 20151009
  Transmission Date: 20160304
  Serious: Yes (Death)
  Sender: FDA-Public Use
  Company Number: DE-INCYTE CORPORATION-2015IN004921

PATIENT
  Sex: Female

DRUGS (2)
  1. INCB018424 [Suspect]
     Active Substance: RUXOLITINIB
     Indication: MYELOFIBROSIS
     Dosage: 15 MG, BID (2 DF PER DAY)
     Route: 048
     Dates: start: 20131219, end: 20140724
  2. INCB018424 [Suspect]
     Active Substance: RUXOLITINIB
     Dosage: 5 MG, QID (4 DF PER DAY)
     Route: 048
     Dates: start: 20140725

REACTIONS (1)
  - Death [Fatal]

NARRATIVE: CASE EVENT DATE: 20150909
